FAERS Safety Report 9851709 (Version 1)
Quarter: 2014Q1

REPORT INFORMATION
  Report Type: Spontaneous
  Country: US (occurrence: US)
  Receive Date: 20140129
  Receipt Date: 20140129
  Transmission Date: 20141002
  Serious: No
  Sender: FDA-Public Use
  Company Number: US-B.I. PHARMACEUTICALS,INC./RIDGEFIELD-2014-BI-02240BP

PATIENT
  Age: 59 Year
  Sex: Female

DRUGS (1)
  1. COMBIVENT [Suspect]
     Indication: EMPHYSEMA
     Dosage: DOSE PER APPLICATION 20 MCG / 100 MCG; DAILY DOSE: 80 MCG / 400 MCG
     Route: 055
     Dates: start: 20131024, end: 201401

REACTIONS (2)
  - Headache [Recovered/Resolved]
  - Pain [Recovered/Resolved]
